FAERS Safety Report 4352333-5 (Version None)
Quarter: 2004Q2

REPORT INFORMATION
  Report Type: 
  Country: None (occurrence: None)
  Receive Date: 20040415
  Receipt Date: 20000114
  Transmission Date: 20050107
  Serious: Yes (Death)
  Sender: FDA-Public Use
  Company Number: 2000UW00137

PATIENT
  Age: 95 Year
  Sex: Female

DRUGS (1)
  1. TENORMIN [Suspect]
     Dosage: PO
     Route: 048

REACTIONS (1)
  - DEATH [None]
